FAERS Safety Report 9904331 (Version 3)
Quarter: 2014Q3

REPORT INFORMATION
  Report Type: Spontaneous
  Country: US (occurrence: US)
  Receive Date: 20140218
  Receipt Date: 20140909
  Transmission Date: 20150326
  Serious: No
  Sender: FDA-Public Use
  Company Number: US-PFIZER INC-2014042299

PATIENT
  Age: 60 Year
  Sex: Female

DRUGS (2)
  1. ALAVERT ALLERGY [Suspect]
     Active Substance: LORATADINE
     Indication: HYPERSENSITIVITY
  2. ALAVERT ALLERGY [Suspect]
     Active Substance: LORATADINE
     Indication: SINUS CONGESTION
     Dosage: ONE TABLET (5/120 MG), ONCE A DAY
     Route: 048
     Dates: start: 20140210, end: 20140211

REACTIONS (4)
  - Drug ineffective [Unknown]
  - Feeling abnormal [Unknown]
  - Cough [Unknown]
  - Respiratory disorder [Unknown]

NARRATIVE: CASE EVENT DATE: 201402
